FAERS Safety Report 8594473-0 (Version None)
Quarter: 2012Q3

REPORT INFORMATION
  Report Type: 
  Country: None (occurrence: None)
  Receive Date: 20120801
  Receipt Date: 20120724
  Transmission Date: 20120928
  Serious: Yes (Other)
  Sender: FDA-Public Use
  Company Number: 201007019

PATIENT
  Age: 61 Year
  Sex: Female
  Weight: 65.7716 kg

DRUGS (6)
  1. XIAFLEX [Suspect]
     Indication: DUPUYTREN'S CONTRACTURE
     Dosage: 1 IN 1 D, INTRALESIONAL; 1 IN 1 D, INTRALESIONAL
     Route: 026
     Dates: start: 20100101, end: 20100101
  2. XIAFLEX [Suspect]
     Indication: DUPUYTREN'S CONTRACTURE
     Dosage: 1 IN 1 D, INTRALESIONAL; 1 IN 1 D, INTRALESIONAL
     Route: 026
     Dates: start: 20100630, end: 20100630
  3. NEXIUM [Concomitant]
  4. MYSOLINE [Concomitant]
  5. ANESTHETICS, LOCAL (ANESTHETICS, LOCAL) [Suspect]
     Dosage: TOPICAL
     Route: 061
     Dates: start: 20100701, end: 20100801
  6. VITAMINS (VITAMINS NOS) [Concomitant]

REACTIONS (11)
  - PAIN IN EXTREMITY [None]
  - LYMPH NODE PAIN [None]
  - SCAR [None]
  - SKIN GRAFT [None]
  - CONTUSION [None]
  - BURNING SENSATION [None]
  - BLOOD BLISTER [None]
  - DRUG INEFFECTIVE [None]
  - INJECTION SITE PAIN [None]
  - OEDEMA PERIPHERAL [None]
  - BURNS THIRD DEGREE [None]
